FAERS Safety Report 7903636-6 (Version None)
Quarter: 2011Q4

REPORT INFORMATION
  Report Type: 
  Country: None (occurrence: None)
  Receive Date: 20111109
  Receipt Date: 20111027
  Transmission Date: 20120403
  Serious: Yes (Hospitalization)
  Sender: FDA-Public Use
  Company Number: US-NAPPMUNDI-DEU-2011-0007273

PATIENT
  Sex: Female

DRUGS (17)
  1. HYDROMORPHONE HCL [Suspect]
     Dosage: 8 MG, DAILY
     Route: 048
     Dates: start: 20110420, end: 20110420
  2. LIPITOR [Concomitant]
     Indication: HYPERCHOLESTEROLAEMIA
     Dosage: 40 MG, DAILY
     Route: 048
     Dates: start: 20100101
  3. TRAZODONE HYDROCHLORIDE [Concomitant]
     Indication: INSOMNIA
     Dosage: 200 MG, DAILY
     Route: 048
     Dates: start: 19970101
  4. DITROPAN [Concomitant]
     Indication: BLADDER DISORDER
     Dosage: 10 MG, DAILY
     Route: 048
     Dates: start: 20080101
  5. CARAFATE [Concomitant]
     Indication: IRRITABLE BOWEL SYNDROME
     Dosage: 3 G, DAILY
     Route: 048
     Dates: start: 20050101
  6. MULTI-VITAMINS [Concomitant]
     Indication: PROPHYLAXIS
     Dosage: 1 TABLET, DAILY
     Route: 048
     Dates: start: 20080101
  7. PROMETHAZINE [Concomitant]
     Indication: NAUSEA
     Dosage: 25 MG, DAILY
     Route: 048
     Dates: start: 20080101
  8. HYDROMORPHONE HCL [Suspect]
     Indication: BACK PAIN
     Dosage: 8 MG, DAILY
     Route: 048
     Dates: start: 20110425, end: 20110425
  9. SINGULAIR [Concomitant]
     Indication: HYPERSENSITIVITY
     Dosage: 10 MG, DAILY
     Route: 048
     Dates: start: 20000101
  10. BENTYL [Concomitant]
     Indication: IRRITABLE BOWEL SYNDROME
     Dosage: 40 MG, DAILY
     Route: 048
     Dates: start: 20080101
  11. LYRICA [Concomitant]
     Indication: RESTLESS LEGS SYNDROME
     Dosage: 50 MG, DAILY
     Route: 048
     Dates: start: 20090101
  12. CARVEDILOL [Concomitant]
     Indication: ARRHYTHMIA
     Dosage: 3125 MG, DAILY
     Route: 048
     Dates: start: 20100101
  13. CYMBALTA [Concomitant]
     Indication: DEPRESSION
     Dosage: 120 MG, DAILY
     Route: 048
     Dates: start: 20060101
  14. NABUMETONE [Concomitant]
     Indication: OSTEOARTHRITIS
     Dosage: 1500 MG, DAILY
     Route: 048
     Dates: start: 20080101
  15. ALLEGRA [Concomitant]
     Indication: HYPERSENSITIVITY
     Dosage: 180 MG, DAILY
     Route: 048
     Dates: start: 19980101
  16. ZOLPIDEM [Concomitant]
     Indication: INSOMNIA
     Dosage: 10 MG, DAILY
     Route: 048
     Dates: start: 20080101
  17. HYDROMORPHONE HCL [Suspect]
     Indication: CONSTIPATION
     Dosage: 16 MG, DAILY
     Route: 048
     Dates: start: 20110421, end: 20110424

REACTIONS (7)
  - PARAESTHESIA [None]
  - ORTHOSTATIC HYPOTENSION [None]
  - DEHYDRATION [None]
  - AMNESIA [None]
  - RENAL FAILURE ACUTE [None]
  - DIZZINESS [None]
  - VISION BLURRED [None]
